FAERS Safety Report 7715937-5 (Version None)
Quarter: 2011Q3

REPORT INFORMATION
  Report Type: 
  Country: None (occurrence: None)
  Receive Date: 20110829
  Receipt Date: 20110803
  Transmission Date: 20111222
  Serious: No
  Sender: FDA-Public Use
  Company Number: US-ROXANE LABORATORIES, INC.-2011-RO-01137RO

PATIENT
  Age: 89 Year
  Sex: Female

DRUGS (3)
  1. TREANDA [Suspect]
     Indication: LYMPHOMA
     Route: 042
  2. PREDNISONE [Suspect]
     Indication: LYMPHOMA
  3. RITUXAN [Suspect]
     Indication: LYMPHOMA

REACTIONS (1)
  - RASH [None]
